FAERS Safety Report 7459568-3 (Version None)
Quarter: 2011Q2

REPORT INFORMATION
  Report Type: 
  Country: None (occurrence: None)
  Receive Date: 20110505
  Receipt Date: 20110428
  Transmission Date: 20111010
  Serious: Yes (Death)
  Sender: FDA-Public Use
  Company Number: US-BRISTOL-MYERS SQUIBB COMPANY-15690514

PATIENT
  Age: 57 Year
  Sex: Female

DRUGS (1)
  1. METFORMIN HCL [Suspect]
     Indication: HYPERGLYCAEMIA

REACTIONS (2)
  - LACTIC ACIDOSIS [None]
  - CARDIAC ARREST [None]
